FAERS Safety Report 4394680-7 (Version None)
Quarter: 2004Q3

REPORT INFORMATION
  Report Type: 
  Country: None (occurrence: None)
  Receive Date: 20040707
  Receipt Date: 20040621
  Transmission Date: 20050211
  Serious: Yes (Hospitalization)
  Sender: FDA-Public Use
  Company Number: US-JNJFOC-20040506489

PATIENT
  Age: 65 Year
  Sex: Female
  Weight: 57.6068 kg

DRUGS (17)
  1. DURAGESIC [Suspect]
     Indication: PAIN
     Dosage: SEE IMAGE
     Route: 062
     Dates: start: 20040101, end: 20040403
  2. DURAGESIC [Suspect]
     Indication: PAIN
     Dosage: SEE IMAGE
     Route: 062
     Dates: start: 20040403
  3. DURAGESIC [Suspect]
  4. LEVOXYL (LEVOTHYROXINE SODIUM) TABLETS [Concomitant]
  5. CLARINEX [Concomitant]
  6. PHENERGAN (PROMETHAZINE HYDROCHLORIDE) TABLETS [Concomitant]
  7. VITAMINS (VITAMINS) TABLETS [Concomitant]
  8. ZYRTEC [Concomitant]
  9. AMBIEN [Concomitant]
  10. SYNTHROID (LEVOTHYROXINE SODIUM) TABLETS [Concomitant]
  11. NEURONTIN (GABAPENTIN) TABLETS [Concomitant]
  12. HYZAAR (HYZAAR) TABLETS [Concomitant]
  13. LIPITOR [Concomitant]
  14. PLAVIX [Concomitant]
  15. CARTIA XT (DILTIAZEM) CAPSULES [Concomitant]
  16. XENICAL (ORLISTAT) TABLETS [Concomitant]
  17. DETROL LA (TOLTERODINE L-TARTRATE) CAPSULES [Concomitant]

REACTIONS (18)
  - ABDOMINAL PAIN [None]
  - ABDOMINAL TENDERNESS [None]
  - ASTHENIA [None]
  - BODY TEMPERATURE INCREASED [None]
  - CYSTITIS [None]
  - DEHYDRATION [None]
  - GASTROENTERITIS [None]
  - HEADACHE [None]
  - HEART RATE INCREASED [None]
  - INADEQUATE ANALGESIA [None]
  - MEDICATION ERROR [None]
  - NAUSEA [None]
  - PHARMACEUTICAL PRODUCT COMPLAINT [None]
  - PYREXIA [None]
  - RESTLESSNESS [None]
  - URINE KETONE BODY PRESENT [None]
  - VOMITING [None]
  - WEIGHT INCREASED [None]
